FAERS Safety Report 11704257 (Version 1)
Quarter: 2015Q4

REPORT INFORMATION
  Report Type: Spontaneous
  Country: US (occurrence: None)
  Receive Date: 20151105
  Receipt Date: 20151105
  Transmission Date: 20160304
  Serious: No
  Sender: FDA-Public Use
  Company Number: None

PATIENT
  Age: 65 Year
  Sex: Male

DRUGS (12)
  1. ASPIRIN 81MG [Concomitant]
     Active Substance: ASPIRIN
  2. MIRTAZEPINE [Concomitant]
     Active Substance: MIRTAZAPINE
  3. CALCIUM [Concomitant]
     Active Substance: CALCIUM
  4. METFORMIN [Concomitant]
     Active Substance: METFORMIN HYDROCHLORIDE
  5. NEXIUM [Concomitant]
     Active Substance: ESOMEPRAZOLE MAGNESIUM
  6. CITALOPRAM [Concomitant]
     Active Substance: CITALOPRAM HYDROBROMIDE
  7. ENOXAPARIN [Concomitant]
     Active Substance: ENOXAPARIN
  8. OXYCODONE [Concomitant]
     Active Substance: OXYCODONE
  9. ONDANSETRON [Concomitant]
     Active Substance: ONDANSETRON
  10. AFINITOR [Suspect]
     Active Substance: EVEROLIMUS
     Indication: PANCREATIC CARCINOMA
     Route: 048
     Dates: start: 20151015, end: 20151026
  11. LORAZEPAM. [Concomitant]
     Active Substance: LORAZEPAM
  12. LOMOTIL [Concomitant]
     Active Substance: ATROPINE SULFATE\DIPHENOXYLATE HYDROCHLORIDE

REACTIONS (4)
  - Platelet count decreased [None]
  - Fatigue [None]
  - Haematochezia [None]
  - Therapy change [None]

NARRATIVE: CASE EVENT DATE: 20151026
